FAERS Safety Report 7938288-2 (Version None)
Quarter: 2011Q4

REPORT INFORMATION
  Report Type: 
  Country: None (occurrence: None)
  Receive Date: 20111123
  Receipt Date: 20111115
  Transmission Date: 20120403
  Serious: Yes (Congenital Anomaly)
  Sender: FDA-Public Use
  Company Number: ES-ELI_LILLY_AND_COMPANY-ES201111005520

PATIENT

DRUGS (2)
  1. HUMALOG [Suspect]
     Indication: DIABETES MELLITUS
     Dosage: UNK, UNKNOWN
     Route: 064
  2. HUMALOG [Suspect]
     Dosage: UNK, UNKNOWN
     Route: 064

REACTIONS (3)
  - PYLORIC STENOSIS [None]
  - LARGE FOR DATES BABY [None]
  - FOETAL EXPOSURE DURING PREGNANCY [None]
